FAERS Safety Report 10192011 (Version 1)
Quarter: 2014Q2

REPORT INFORMATION
  Report Type: Spontaneous
  Country: US (occurrence: US)
  Receive Date: 20140523
  Receipt Date: 20140523
  Transmission Date: 20141212
  Serious: Yes (Disabling)
  Sender: FDA-Public Use
  Company Number: US-PFIZER INC-2014138728

PATIENT
  Age: 60 Year
  Sex: Female
  Weight: 111 kg

DRUGS (7)
  1. LYRICA [Suspect]
     Indication: ARTHROPATHY
     Dosage: ONE 75 MG CAPSULE IN MORNING, ONE 75 MG CAPSULE IN THE AFTERNOON AND TWO 75 MG CAPSULES AT NIGHT
  2. METFORMIN [Concomitant]
     Indication: DIABETES MELLITUS
     Dosage: UNK
  3. GLYBURIDE [Concomitant]
     Indication: DIABETES MELLITUS
     Dosage: UNK
  4. LEVOTHYROXINE [Concomitant]
     Indication: THYROID DISORDER
     Dosage: UNK
  5. HYDROCODONE [Concomitant]
     Indication: PAIN
     Dosage: UNK
  6. AMLODIPINE [Concomitant]
     Indication: HYPERTENSION
     Dosage: UNK
  7. MELOXICAM [Concomitant]
     Indication: ARTHRITIS
     Dosage: UNK

REACTIONS (1)
  - Chondropathy [Unknown]
